FAERS Safety Report 24636668 (Version 1)
Quarter: 2024Q4

REPORT INFORMATION
  Report Type: Report from Study
  Country: US (occurrence: None)
  Receive Date: 20241119
  Receipt Date: 20241119
  Transmission Date: 20250115
  Serious: No
  Sender: BANNER
  Company Number: US-PTA-005836

PATIENT

DRUGS (1)
  1. NAPROXEN [Suspect]
     Active Substance: NAPROXEN
     Route: 048

REACTIONS (3)
  - Osteoarthritis [Unknown]
  - Concussion [Unknown]
  - Toothache [Unknown]
